FAERS Safety Report 24735680 (Version 1)
Quarter: 2024Q4

REPORT INFORMATION
  Report Type: Spontaneous
  Country: CN (occurrence: CN)
  Receive Date: 20241216
  Receipt Date: 20241216
  Transmission Date: 20250114
  Serious: Yes (Other)
  Sender: PFIZER
  Company Number: CN-PFIZER INC-PV202400158177

PATIENT
  Age: 49 Year
  Sex: Female

DRUGS (2)
  1. PACLITAXEL [Suspect]
     Active Substance: PACLITAXEL
     Indication: Ovarian cancer
     Dosage: 140 MG, 1X/DAY
     Route: 041
     Dates: start: 20230513, end: 20230513
  2. CISPLATIN [Suspect]
     Active Substance: CISPLATIN
     Indication: Symptomatic treatment
     Dosage: 30 MG, 1X/DAY
     Route: 041
     Dates: start: 20230513, end: 20230515

REACTIONS (1)
  - Hepatic function abnormal [Recovering/Resolving]

NARRATIVE: CASE EVENT DATE: 20230517
